FAERS Safety Report 11528411 (Version 1)
Quarter: 2015Q3

REPORT INFORMATION
  Report Type: Spontaneous
  Country: US (occurrence: US)
  Receive Date: 20150921
  Receipt Date: 20150921
  Transmission Date: 20151125
  Serious: No
  Sender: FDA-Public Use
  Company Number: US-TEVA-547197USA

PATIENT
  Sex: Female

DRUGS (1)
  1. CLONAZEPAM. [Suspect]
     Active Substance: CLONAZEPAM
     Indication: RESTLESS LEGS SYNDROME
     Dosage: FORM OF ADM UNKNOWN
     Dates: start: 2007

REACTIONS (3)
  - Dry throat [Unknown]
  - Cough [Unknown]
  - Choking sensation [Unknown]
